FAERS Safety Report 19814920 (Version 1)
Quarter: 2021Q3

REPORT INFORMATION
  Report Type: Spontaneous
  Country: US (occurrence: US)
  Receive Date: 20210907
  Receipt Date: 20210907
  Transmission Date: 20211014
  Serious: No
  Sender: FDA-Public Use
  Company Number: None

PATIENT
  Age: 49 Year
  Sex: Male
  Weight: 129 kg

DRUGS (1)
  1. TOCILIZUMAB (TOCILIZUMAB 20MG/ML INJ, SOLN,20ML) [Suspect]
     Active Substance: TOCILIZUMAB
     Route: 042
     Dates: start: 20210902, end: 20210902

REACTIONS (4)
  - Hypotension [None]
  - Cardio-respiratory arrest [None]
  - Oxygen saturation decreased [None]
  - Bradycardia [None]

NARRATIVE: CASE EVENT DATE: 20210905
